FAERS Safety Report 7150537-X (Version None)
Quarter: 2010Q4

REPORT INFORMATION
  Report Type: 
  Country: None (occurrence: None)
  Receive Date: 20101210
  Receipt Date: 20101203
  Transmission Date: 20110411
  Serious: Yes (Death, Hospitalization, Other)
  Sender: FDA-Public Use
  Company Number: DE-ELI_LILLY_AND_COMPANY-DE200712001746

PATIENT
  Sex: Male
  Weight: 90 kg

DRUGS (3)
  1. XIGRIS [Suspect]
     Indication: SEPSIS
     Dosage: 0.2 MG/ML, UNK
  2. ZIENAM [Concomitant]
     Dosage: UNK, UNKNOWN
  3. VANCOMYCIN [Concomitant]
     Dosage: UNK, UNKNOWN

REACTIONS (1)
  - SEPTIC SHOCK [None]
